FAERS Safety Report 6992122-6 (Version None)
Quarter: 2010Q3

REPORT INFORMATION
  Report Type: 
  Country: None (occurrence: None)
  Receive Date: 20100917
  Receipt Date: 20100914
  Transmission Date: 20110219
  Serious: Yes (Death, Other)
  Sender: FDA-Public Use
  Company Number: US-ASTRAZENECA-2007UW09598

PATIENT
  Age: 51 Year
  Sex: Male
  Weight: 116.1 kg

DRUGS (34)
  1. SEROQUEL [Suspect]
     Indication: BIPOLAR DISORDER
     Route: 048
     Dates: start: 20040401, end: 20050601
  2. SEROQUEL [Suspect]
     Indication: ANXIETY
     Route: 048
     Dates: start: 20040401, end: 20050601
  3. SEROQUEL [Suspect]
     Indication: DEPRESSION
     Route: 048
     Dates: start: 20040401, end: 20050601
  4. SEROQUEL [Suspect]
     Dosage: 100-400 MG
     Route: 048
     Dates: start: 20040401
  5. SEROQUEL [Suspect]
     Dosage: 100-400 MG
     Route: 048
     Dates: start: 20040401
  6. SEROQUEL [Suspect]
     Dosage: 100-400 MG
     Route: 048
     Dates: start: 20040401
  7. SEROQUEL [Suspect]
     Route: 048
     Dates: start: 20040201, end: 20050101
  8. SEROQUEL [Suspect]
     Route: 048
     Dates: start: 20040201, end: 20050101
  9. SEROQUEL [Suspect]
     Route: 048
     Dates: start: 20040201, end: 20050101
  10. CATAPRES [Concomitant]
  11. CLONAZEPAM [Concomitant]
  12. PROPOXYPHENE HCL [Concomitant]
  13. CYANOCOBALAMIN [Concomitant]
  14. GLYBURIDE [Concomitant]
  15. METHYLPREDNISOLONE [Concomitant]
  16. ALLOPURINOL [Concomitant]
  17. HYDROCODONE [Concomitant]
  18. VERELAN [Concomitant]
  19. FOLIC ACID [Concomitant]
  20. HYDROXYZINE [Concomitant]
  21. AVODART [Concomitant]
  22. SYMLIN [Concomitant]
  23. PAMOATE [Concomitant]
  24. PROGRAF [Concomitant]
  25. REQUIP [Concomitant]
  26. LYRICA [Concomitant]
  27. ACTONEL [Concomitant]
  28. LANTUS [Concomitant]
  29. ZETIA [Concomitant]
  30. NEXIUM [Concomitant]
  31. LEXAPRO [Concomitant]
     Dates: start: 20060101
  32. FLOMAX [Concomitant]
  33. PROMETHAZINE [Concomitant]
  34. GABAPENTIN [Concomitant]

REACTIONS (18)
  - ARTHRALGIA [None]
  - BLOOD GLUCOSE INCREASED [None]
  - BLOOD TRIGLYCERIDES INCREASED [None]
  - CHEST PAIN [None]
  - DEATH [None]
  - DIABETIC EYE DISEASE [None]
  - HYPERGLYCAEMIA [None]
  - HYPOAESTHESIA [None]
  - HYPOAESTHESIA FACIAL [None]
  - HYPOTENSION [None]
  - ISCHAEMIA [None]
  - OSTEOPOROSIS [None]
  - PAIN IN EXTREMITY [None]
  - PANCREATITIS [None]
  - PANCREATITIS ACUTE [None]
  - PELVIC PAIN [None]
  - TYPE 1 DIABETES MELLITUS [None]
  - TYPE 2 DIABETES MELLITUS [None]
